FAERS Safety Report 7100207-9 (Version None)
Quarter: 2010Q4

REPORT INFORMATION
  Report Type: 
  Country: None (occurrence: None)
  Receive Date: 20101112
  Receipt Date: 20101109
  Transmission Date: 20110411
  Serious: Yes (Hospitalization)
  Sender: FDA-Public Use
  Company Number: GB-PFIZER INC-2010140725

PATIENT
  Age: 76 Year
  Sex: Male

DRUGS (11)
  1. NITROGLYCERIN [Suspect]
     Indication: ANGINA PECTORIS
     Dosage: 5 MG, 1 PATCH DAILY
     Route: 062
     Dates: start: 20070101
  2. XALATAN [Concomitant]
     Dosage: 1 DROP/EYE DAILY
     Route: 047
  3. ALPHAGAN [Concomitant]
     Dosage: 1 DROP/EYE TWICE DAILY
  4. DIAMOX SRC [Concomitant]
     Indication: GLAUCOMA
     Dosage: 250 MG, 2X/DAY
     Route: 048
     Dates: start: 20100301
  5. BRINZOLAMIDE/TIMOLOL [Concomitant]
     Route: 047
  6. ASTRIN [Concomitant]
     Dosage: 5 MG
     Route: 048
  7. BRICANYL [Concomitant]
     Indication: ASTHMA
     Dosage: UNK MG, AS NEEDED
     Route: 055
  8. PULMICORT [Concomitant]
     Indication: ASTHMA
     Dosage: UNK MG, 2X/DAY
     Route: 055
  9. SLOZEM [Concomitant]
     Indication: ANGINA PECTORIS
     Dosage: 180 MG, QD
     Route: 048
     Dates: start: 20100101
  10. ASPIRIN [Concomitant]
     Indication: ANTICOAGULANT THERAPY
     Dosage: 75 MG, 1X/DAY
     Route: 048
     Dates: start: 20050101
  11. FLUOROMETHOLONE [Concomitant]
     Dosage: 1 DROP 2 EYE
     Route: 047

REACTIONS (1)
  - ANGLE CLOSURE GLAUCOMA [None]
